FAERS Safety Report 10080910 (Version 1)
Quarter: 2014Q2

REPORT INFORMATION
  Report Type: Spontaneous
  Country: US (occurrence: US)
  Receive Date: 20140416
  Receipt Date: 20140416
  Transmission Date: 20141212
  Serious: Yes (Other)
  Sender: FDA-Public Use
  Company Number: PHEH2014US007281

PATIENT
  Sex: Female

DRUGS (1)
  1. ILARIS [Suspect]
     Indication: CRYOPYRIN ASSOCIATED PERIODIC SYNDROME

REACTIONS (2)
  - Slipping rib syndrome [Unknown]
  - Chondropathy [Unknown]
